FAERS Safety Report 8119360-3 (Version None)
Quarter: 2012Q1

REPORT INFORMATION
  Report Type: 
  Country: None (occurrence: None)
  Receive Date: 20120207
  Receipt Date: 20120124
  Transmission Date: 20120608
  Serious: Yes (Other)
  Sender: FDA-Public Use
  Company Number: GB-MYLANLABS-2012S1002552

PATIENT
  Age: 11 Month
  Sex: Female

DRUGS (3)
  1. MELPHALAN HYDROCHLORIDE [Suspect]
     Indication: RETINOBLASTOMA
     Route: 013
  2. ANESTHETICS, GENERAL [Concomitant]
  3. HEPARIN [Concomitant]

REACTIONS (4)
  - ERYTHEMA [None]
  - RETINAL DETACHMENT [None]
  - RETINAL PIGMENT EPITHELIOPATHY [None]
  - EPISTAXIS [None]
